FAERS Safety Report 12272044 (Version 1)
Quarter: 2016Q2

REPORT INFORMATION
  Report Type: Spontaneous
  Country: US (occurrence: US)
  Receive Date: 20160415
  Receipt Date: 20160415
  Transmission Date: 20160815
  Serious: No
  Sender: FDA-Public Use
  Company Number: US-ASTRAZENECA-2016SE38978

PATIENT
  Sex: Female

DRUGS (2)
  1. NEXIUM 24HR [Suspect]
     Active Substance: ESOMEPRAZOLE MAGNESIUM
     Dosage: TAKES 4 DAILY, TWICE DAILY, 2 IN THE MORNING
     Route: 048
  2. NEXIUM 24HR [Suspect]
     Active Substance: ESOMEPRAZOLE MAGNESIUM
     Dosage: TAKES 4 DAILY, TWICE DAILY, 2 AT DINNER
     Route: 048

REACTIONS (2)
  - Multiple allergies [Unknown]
  - Product use issue [Unknown]
